FAERS Safety Report 19280114 (Version 1)
Quarter: 2021Q2

REPORT INFORMATION
  Report Type: Spontaneous
  Country: BE (occurrence: DE)
  Receive Date: 20210520
  Receipt Date: 20210520
  Transmission Date: 20210717
  Serious: Yes (Other)
  Sender: FDA-Public Use
  Company Number: BE-ACCORD-225273

PATIENT
  Sex: Male

DRUGS (6)
  1. CISPLATIN. [Suspect]
     Active Substance: CISPLATIN
     Indication: METASTASES TO LYMPH NODES
  2. FLUOROURACIL. [Concomitant]
     Active Substance: FLUOROURACIL
     Indication: ADENOID CYSTIC CARCINOMA
  3. CISPLATIN. [Suspect]
     Active Substance: CISPLATIN
     Indication: ADENOID CYSTIC CARCINOMA
  4. FLUOROURACIL. [Concomitant]
     Active Substance: FLUOROURACIL
     Indication: METASTASES TO BONE
  5. CISPLATIN. [Suspect]
     Active Substance: CISPLATIN
     Indication: METASTASES TO BONE
  6. FLUOROURACIL. [Concomitant]
     Active Substance: FLUOROURACIL
     Indication: METASTASES TO LYMPH NODES

REACTIONS (5)
  - Off label use [Unknown]
  - Nephropathy toxic [Unknown]
  - Haematotoxicity [Unknown]
  - Impaired quality of life [Unknown]
  - Vomiting [Unknown]
